FAERS Safety Report 5724172-1 (Version None)
Quarter: 2008Q2

REPORT INFORMATION
  Report Type: 
  Country: None (occurrence: None)
  Receive Date: 20080430
  Receipt Date: 20080424
  Transmission Date: 20081010
  Serious: Yes (Other)
  Sender: FDA-Public Use
  Company Number: PHHY2008JP06569

PATIENT

DRUGS (1)
  1. CYCLOSPORINE [Suspect]

REACTIONS (1)
  - RHABDOMYOLYSIS [None]
